FAERS Safety Report 14320077 (Version 3)
Quarter: 2017Q4

REPORT INFORMATION
  Report Type: Report from Study
  Country: DE (occurrence: DE)
  Receive Date: 20171222
  Receipt Date: 20171227
  Transmission Date: 20180321
  Serious: Yes (Death)
  Sender: FDA-Public Use
  Company Number: DE-PFIZER INC-2017539542

PATIENT

DRUGS (9)
  1. MERCAPTOPURINE. [Concomitant]
     Active Substance: MERCAPTOPURINE
     Dosage: WBC COUNT WAS LESS THAN 3.5 X 10^9/L
     Route: 048
  2. TRETINOIN. [Suspect]
     Active Substance: TRETINOIN
     Dosage: CONSOLIDATION: 45 MG/M2/D) WAS GIVEN ON DAYS 1 THROUGH 15
  3. TRETINOIN. [Suspect]
     Active Substance: TRETINOIN
     Dosage: INDUCTION: 45MG/M?/D), 2 DAILY DOSES,  UNTIL COMPLETE HEMATOLOGIC REMISSION, OR MAX. 90 DAYS
     Route: 048
  4. MERCAPTOPURINE. [Concomitant]
     Active Substance: MERCAPTOPURINE
     Dosage: DISCONTINUED IF WBC WAS LESS THAN 2.5 X 10^9/L
  5. TRETINOIN. [Suspect]
     Active Substance: TRETINOIN
     Dosage: ORAL ATRA (45 MG/M?/D) FOR 15 DAYS EVERY 3 MONTHS. 2 YEARS
     Route: 048
  6. TRETINOIN. [Suspect]
     Active Substance: TRETINOIN
     Indication: ACUTE PROMYELOCYTIC LEUKAEMIA
     Dosage: INDUCTION: FOR PATIENTS 20 YEARS OF AGE OR YOUNGER, THE ATRA DOSE WAS ADJUSTED TO 25MG/M?/D
     Route: 048
  7. METHOTREXATE SODIUM. [Concomitant]
     Active Substance: METHOTREXATE SODIUM
     Dosage: INTRAMUSCULAR METHOTREXATE (15 MG/M?/WK), 15 D/3 MO, 2 Y
     Route: 030
  8. IDARUBICIN HCL [Suspect]
     Active Substance: IDARUBICIN HYDROCHLORIDE
     Indication: ACUTE PROMYELOCYTIC LEUKAEMIA
     Dosage: 12MG/M?/D GIVEN AS AN INTRAVENOUS BOLUS DOSE ON DAYS 2, 4, 6 AND 8 (OLDER THAN 70: NO DOSE ON DAY 8)
     Route: 040
  9. MERCAPTOPURINE. [Concomitant]
     Active Substance: MERCAPTOPURINE
     Dosage: PATIENTS NEGATIVE FOR PML/RARA WERE STARTED ON ORAL MERCAPTOPURINE (50 MG/M?/D),15 D/3 MO, 2 Y
     Route: 048

REACTIONS (1)
  - Haemorrhage [Fatal]
